FAERS Safety Report 7435520-9 (Version None)
Quarter: 2011Q2

REPORT INFORMATION
  Report Type: 
  Country: None (occurrence: None)
  Receive Date: 20110418
  Receipt Date: 20110401
  Transmission Date: 20111010
  Serious: Yes (Hospitalization)
  Sender: FDA-Public Use
  Company Number: JPI-P-014416

PATIENT
  Age: 31 Year
  Sex: Male
  Weight: 87.0906 kg

DRUGS (4)
  1. XYREM [Suspect]
     Indication: CATAPLEXY
     Dosage: ORAL; 9 GM (4.5 GM, 2 IN 1 D), ORAL
     Route: 048
     Dates: start: 20050701
  2. XYREM [Suspect]
     Indication: CATAPLEXY
     Dosage: ORAL; 9 GM (4.5 GM, 2 IN 1 D), ORAL
     Route: 048
     Dates: end: 20110328
  3. XYREM [Suspect]
     Indication: CATAPLEXY
     Dosage: ORAL; 9 GM (4.5 GM, 2 IN 1 D), ORAL
     Route: 048
     Dates: start: 20110331
  4. ALLERGY MEDICATION [Concomitant]

REACTIONS (1)
  - MENINGITIS VIRAL [None]
